FAERS Safety Report 20958632 (Version 2)
Quarter: 2022Q2

REPORT INFORMATION
  Report Type: Spontaneous
  Country: US (occurrence: US)
  Receive Date: 20220614
  Receipt Date: 20220620
  Transmission Date: 20220721
  Serious: No
  Sender: FDA-Public Use
  Company Number: US-GLAXOSMITHKLINE-USCH2022020610

PATIENT
  Age: 45 Year
  Sex: Female

DRUGS (1)
  1. CHAPSTICK MOISTURIZER [Suspect]
     Active Substance: OCTINOXATE\OXYBENZONE\PETROLATUM
     Indication: Lip dry
     Dosage: UNK
     Dates: start: 202205, end: 20220609

REACTIONS (3)
  - Cheilitis [Unknown]
  - Lip swelling [Unknown]
  - Lip dry [Unknown]

NARRATIVE: CASE EVENT DATE: 20220501
